FAERS Safety Report 10676933 (Version 1)
Quarter: 2014Q4

REPORT INFORMATION
  Report Type: Spontaneous
  Country: US (occurrence: US)
  Receive Date: 20141226
  Receipt Date: 20141226
  Transmission Date: 20150529
  Serious: Yes (Other)
  Sender: FDA-Public Use
  Company Number: US-BAYER-2014-187935

PATIENT
  Sex: Male

DRUGS (1)
  1. BAYER CHEWABLE LOW DOSE ASPIRIN ORANGE FLAVORED [Suspect]
     Active Substance: ASPIRIN
     Route: 048

REACTIONS (5)
  - Drug administered to patient of inappropriate age [None]
  - Dizziness [Recovered/Resolved]
  - Loss of consciousness [Recovered/Resolved]
  - Heart rate decreased [Recovered/Resolved]
  - Drug hypersensitivity [Unknown]
